FAERS Safety Report 4305523-1 (Version None)
Quarter: 2004Q1

REPORT INFORMATION
  Report Type: 
  Country: None (occurrence: None)
  Receive Date: 20040226
  Receipt Date: 20031113
  Transmission Date: 20041129
  Serious: No
  Sender: FDA-Public Use
  Company Number: US-BRISTOL-MYERS SQUIBB COMPANY-12434569

PATIENT
  Sex: Male
  Weight: 68 kg

DRUGS (1)
  1. ABILIFY [Suspect]
     Route: 048
     Dates: start: 20031018, end: 20031107

REACTIONS (1)
  - DYSTONIA [None]
